FAERS Safety Report 16118018 (Version 10)
Quarter: 2020Q2

REPORT INFORMATION
  Report Type: Report from Study
  Country: DE (occurrence: DE)
  Receive Date: 20190326
  Receipt Date: 20200508
  Transmission Date: 20200713
  Serious: Yes (Hospitalization, Other)
  Sender: FDA-Public Use
  Company Number: DE-EISAI MEDICAL RESEARCH-EC-2019-053857

PATIENT
  Age: 66 Year
  Sex: Female
  Weight: 84 kg

DRUGS (14)
  1. OMEPRAZOLE. [Concomitant]
     Active Substance: OMEPRAZOLE
  2. RAMILICH [Concomitant]
     Active Substance: RAMIPRIL
  3. LERCANIDIPINE [Concomitant]
     Active Substance: LERCANIDIPINE
  4. CEFUROXIME. [Concomitant]
     Active Substance: CEFUROXIME
  5. HYDROCHLOROTHIAZIDE. [Concomitant]
     Active Substance: HYDROCHLOROTHIAZIDE
  6. METFORMIN [Concomitant]
     Active Substance: METFORMIN HYDROCHLORIDE
  7. LEVOTHYROXIN [Concomitant]
     Active Substance: LEVOTHYROXINE
  8. GLIMEPIRID [Concomitant]
     Active Substance: GLIMEPIRIDE
  9. LENVATINIB [Suspect]
     Active Substance: LENVATINIB
     Indication: THYROID CANCER
     Route: 048
     Dates: start: 20181207, end: 20190322
  10. SIMVASTATIN. [Concomitant]
     Active Substance: SIMVASTATIN
  11. RANITIDINE. [Concomitant]
     Active Substance: RANITIDINE
  12. METOPROLOL. [Concomitant]
     Active Substance: METOPROLOL
  13. RIVAROXABAN [Concomitant]
     Active Substance: RIVAROXABAN
  14. METOCLOPRAMIDE. [Concomitant]
     Active Substance: METOCLOPRAMIDE

REACTIONS (2)
  - Groin abscess [Recovered/Resolved]
  - Bronchial obstruction [Recovered/Resolved]

NARRATIVE: CASE EVENT DATE: 20190320
